FAERS Safety Report 10196822 (Version 2)
Quarter: 2014Q2

REPORT INFORMATION
  Report Type: Spontaneous
  Country: JP (occurrence: JP)
  Receive Date: 20140527
  Receipt Date: 20140619
  Transmission Date: 20141212
  Serious: Yes (Other)
  Sender: FDA-Public Use
  Company Number: JP-PFIZER INC-2014139575

PATIENT
  Age: 33 Year
  Sex: Female

DRUGS (3)
  1. ZITHROMAC SR [Suspect]
     Indication: BRONCHITIS
     Dosage: 2 G, SINGLE
     Route: 048
     Dates: start: 20140519, end: 20140519
  2. PRANLUKAST [Suspect]
     Dosage: UNK
  3. CALSIL (PARACETAMOL) [Suspect]
     Dosage: UNK

REACTIONS (2)
  - Melaena [Recovered/Resolved]
  - Vomiting [Recovered/Resolved]
